FAERS Safety Report 21192087 (Version 1)
Quarter: 2022Q3

REPORT INFORMATION
  Report Type: Spontaneous
  Country: US (occurrence: US)
  Receive Date: 20220809
  Receipt Date: 20220809
  Transmission Date: 20221026
  Serious: No
  Sender: FDA-Public Use
  Company Number: US-ENDO PHARMACEUTICALS INC-2021-012943

PATIENT
  Age: 7 Decade
  Sex: Male

DRUGS (2)
  1. TESTOPEL [Suspect]
     Active Substance: TESTOSTERONE
     Indication: Klinefelter^s syndrome
     Dosage: 10 DF, Q12W
     Route: 065
     Dates: start: 2018
  2. TESTOPEL [Suspect]
     Active Substance: TESTOSTERONE
     Indication: Klinefelter^s syndrome
     Dosage: 10 DF, Q12W
     Route: 065
     Dates: start: 2018

REACTIONS (1)
  - Hyperhidrosis [Unknown]
